FAERS Safety Report 16165139 (Version 9)
Quarter: 2019Q3

REPORT INFORMATION
  Report Type: Report from Study
  Country: US (occurrence: US)
  Receive Date: 20190405
  Receipt Date: 20190911
  Transmission Date: 20191004
  Serious: Yes (Hospitalization)
  Sender: FDA-Public Use
  Company Number: US-ACTELION-A-NJ2019-186212

PATIENT
  Age: 56 Year
  Sex: Female
  Weight: 81.63 kg

DRUGS (7)
  1. VELETRI [Suspect]
     Active Substance: EPOPROSTENOL
     Dosage: 8.4 NG/KG, PER MIN
     Route: 042
  2. ADCIRCA [Concomitant]
     Active Substance: TADALAFIL
  3. OPSUMIT [Suspect]
     Active Substance: MACITENTAN
     Indication: PULMONARY ARTERIAL HYPERTENSION
     Dosage: 10 MG
     Route: 048
  4. VELETRI [Suspect]
     Active Substance: EPOPROSTENOL
     Dosage: 7.4 NG/KG, PER MIN
     Route: 042
  5. ADEMPAS [Suspect]
     Active Substance: RIOCIGUAT
     Indication: PRODUCT USED FOR UNKNOWN INDICATION
     Dosage: 2.0 MG, TID
     Route: 065
  6. VELETRI [Suspect]
     Active Substance: EPOPROSTENOL
     Dosage: 6.1 NG/KG, PER MIN
     Route: 042
  7. VELETRI [Suspect]
     Active Substance: EPOPROSTENOL
     Indication: PULMONARY ARTERIAL HYPERTENSION
     Dosage: 8.7 NG/KG, PER MIN
     Route: 042

REACTIONS (11)
  - Hospitalisation [Unknown]
  - Product dose omission [Unknown]
  - Pain in jaw [Unknown]
  - Condition aggravated [Unknown]
  - Diarrhoea [Unknown]
  - Dyspepsia [Not Recovered/Not Resolved]
  - Dyspnoea exertional [Not Recovered/Not Resolved]
  - Dyspnoea [Unknown]
  - Pain [Unknown]
  - Catheter site erythema [Unknown]
  - Catheter site rash [Recovering/Resolving]

NARRATIVE: CASE EVENT DATE: 20190425
